FAERS Safety Report 9641050 (Version 3)
Quarter: 2014Q1

REPORT INFORMATION
  Report Type: Spontaneous
  Country: FR (occurrence: FR)
  Receive Date: 20131023
  Receipt Date: 20140307
  Transmission Date: 20141002
  Serious: Yes (Hospitalization)
  Sender: FDA-Public Use
  Company Number: FR-MERCK-1310FRA006488

PATIENT
  Age: 58 Year
  Sex: Male

DRUGS (1)
  1. EZETROL [Suspect]
     Dosage: UNK
     Route: 048
     Dates: end: 20130630

REACTIONS (1)
  - Thrombocytopenic purpura [Recovered/Resolved]
